FAERS Safety Report 4489011-8 (Version None)
Quarter: 2004Q4

REPORT INFORMATION
  Report Type: 
  Country: None (occurrence: None)
  Receive Date: 20041029
  Receipt Date: 20041011
  Transmission Date: 20050328
  Serious: Yes (Hospitalization)
  Sender: FDA-Public Use
  Company Number: US-AMGEN-US094970

PATIENT
  Sex: Male
  Weight: 101 kg

DRUGS (11)
  1. SENSIPAR [Suspect]
     Indication: HYPERPARATHYROIDISM SECONDARY
     Route: 048
     Dates: start: 20040923, end: 20040926
  2. EPOGEN [Concomitant]
  3. NEXIUM [Concomitant]
  4. PHOSLO [Concomitant]
  5. RENAGEL [Concomitant]
  6. DIGOXIN [Concomitant]
  7. NEPHRO-VITE [Concomitant]
  8. LOPRESSOR [Concomitant]
  9. COUMADIN [Concomitant]
  10. CORTISONE [Concomitant]
  11. PLATINOL [Concomitant]

REACTIONS (8)
  - ABDOMINAL PAIN UPPER [None]
  - BLISTER [None]
  - CELLULITIS [None]
  - DIABETIC MICROANGIOPATHY [None]
  - DIARRHOEA [None]
  - HYPERSENSITIVITY [None]
  - RASH [None]
  - VASCULITIS [None]
